FAERS Safety Report 7048934-6 (Version None)
Quarter: 2010Q4

REPORT INFORMATION
  Report Type: 
  Country: None (occurrence: None)
  Receive Date: 20101018
  Receipt Date: 20101007
  Transmission Date: 20110411
  Serious: Yes (Hospitalization)
  Sender: FDA-Public Use
  Company Number: GB-ASTRAZENECA-2010SE47660

PATIENT
  Sex: Male

DRUGS (1)
  1. ZOLADEX [Suspect]
     Indication: PROSTATE CANCER
     Dosage: 10.8 MGS
     Route: 058

REACTIONS (1)
  - HEPATIC CYST RUPTURED [None]
